FAERS Safety Report 11891159 (Version 1)
Quarter: 2016Q1

REPORT INFORMATION
  Report Type: Spontaneous
  Country: US (occurrence: None)
  Receive Date: 20160105
  Receipt Date: 20160105
  Transmission Date: 20160526
  Serious: Yes (Hospitalization)
  Sender: FDA-Public Use
  Company Number: None

PATIENT
  Age: 20 Year
  Sex: Female
  Weight: 71.8 kg

DRUGS (4)
  1. CYCLOPHOSPHAMIDE. [Suspect]
     Active Substance: CYCLOPHOSPHAMIDE
     Dates: end: 20151125
  2. ONCASPAR [Suspect]
     Active Substance: PEGASPARGASE
     Dates: end: 20151205
  3. MERCAPTOPURINE. [Suspect]
     Active Substance: MERCAPTOPURINE
     Dates: end: 20151208
  4. VINCRISTINE SULFATE. [Suspect]
     Active Substance: VINCRISTINE SULFATE
     Dates: end: 20151216

REACTIONS (13)
  - Fluid overload [None]
  - Pneumonia klebsiella [None]
  - Multiple organ dysfunction syndrome [None]
  - Disseminated intravascular coagulation [None]
  - Decubitus ulcer [None]
  - Acute respiratory distress syndrome [None]
  - Ischaemic hepatitis [None]
  - Respiratory failure [None]
  - Septic shock [None]
  - Renal failure [None]
  - Peripheral ischaemia [None]
  - Hypoalbuminaemia [None]
  - Bone marrow failure [None]

NARRATIVE: CASE EVENT DATE: 20151222
